FAERS Safety Report 14176613 (Version 4)
Quarter: 2018Q2

REPORT INFORMATION
  Report Type: Report from Study
  Country: None (occurrence: US)
  Receive Date: 20171110
  Receipt Date: 20180601
  Transmission Date: 20180711
  Serious: Yes (Other)
  Sender: FDA-Public Use
  Company Number: US-ABBVIE-17K-163-2034151-00

PATIENT
  Sex: Female

DRUGS (3)
  1. XARELTO [Concomitant]
     Active Substance: RIVAROXABAN
     Indication: ANTICOAGULANT THERAPY
  2. HUMIRA [Suspect]
     Active Substance: ADALIMUMAB
     Indication: RHEUMATOID ARTHRITIS
     Route: 058
     Dates: start: 2014
  3. PROLIA [Concomitant]
     Active Substance: DENOSUMAB
     Indication: OSTEOPOROSIS

REACTIONS (22)
  - Osteoporosis [Unknown]
  - Glaucoma [Unknown]
  - Muscular weakness [Unknown]
  - Atrial fibrillation [Unknown]
  - Joint swelling [Unknown]
  - Fall [Unknown]
  - Dental restoration failure [Unknown]
  - Joint swelling [Not Recovered/Not Resolved]
  - Hypertension [Unknown]
  - Peripheral swelling [Not Recovered/Not Resolved]
  - Bradykinesia [Recovered/Resolved]
  - Exposure to contaminated air [Unknown]
  - Fall [Recovered/Resolved]
  - Blood pressure increased [Recovered/Resolved]
  - Eye contusion [Recovered/Resolved]
  - Macular fibrosis [Unknown]
  - Skin haemorrhage [Unknown]
  - Contusion [Unknown]
  - Laceration [Recovered/Resolved]
  - Laryngitis [Not Recovered/Not Resolved]
  - Asthma [Unknown]
  - Impaired healing [Recovered/Resolved with Sequelae]

NARRATIVE: CASE EVENT DATE: 2017
